FAERS Safety Report 25207775 (Version 1)
Quarter: 2025Q2

REPORT INFORMATION
  Report Type: Spontaneous
  Country: US (occurrence: None)
  Receive Date: 20250415
  Receipt Date: 20250415
  Transmission Date: 20250716
  Serious: Yes (Life-Threatening, Hospitalization)
  Sender: FDA-CTU
  Company Number: None

PATIENT

DRUGS (1)
  1. HYDROMORPHONE [Suspect]
     Active Substance: HYDROMORPHONE

REACTIONS (5)
  - Infusion related reaction [None]
  - Respiratory distress [None]
  - Infusion site discharge [None]
  - Drug delivery system malfunction [None]
  - Accidental overdose [None]

NARRATIVE: CASE EVENT DATE: 20250326
